FAERS Safety Report 4738159-9 (Version None)
Quarter: 2005Q3

REPORT INFORMATION
  Report Type: 
  Country: None (occurrence: None)
  Receive Date: 20050809
  Receipt Date: 20050721
  Transmission Date: 20060218
  Serious: Yes (Other)
  Sender: FDA-Public Use
  Company Number: US-ROCHE-411829

PATIENT
  Age: 58 Year
  Sex: Female

DRUGS (6)
  1. PEGASYS [Suspect]
     Dosage: ROUTE REPORTED AS INJ.
     Route: 050
     Dates: start: 20041005, end: 20050615
  2. PEGASYS [Suspect]
     Dosage: ROUTE REPORTED AS INJECTION.
     Route: 050
     Dates: start: 20050615, end: 20050721
  3. RIBAVIRIN [Suspect]
     Route: 048
     Dates: start: 20041005, end: 20050615
  4. RIBAVIRIN [Suspect]
     Route: 048
     Dates: start: 20050615, end: 20050721
  5. LISINOPRIL [Concomitant]
     Route: 048
  6. PREMARIN [Concomitant]
     Indication: HORMONE REPLACEMENT THERAPY

REACTIONS (11)
  - ASTHENIA [None]
  - CRYING [None]
  - DEPRESSION [None]
  - DYSPNOEA [None]
  - FATIGUE [None]
  - FOREIGN BODY TRAUMA [None]
  - PANIC ATTACK [None]
  - PLATELET COUNT DECREASED [None]
  - PYREXIA [None]
  - SUICIDAL IDEATION [None]
  - TREATMENT NONCOMPLIANCE [None]
